FAERS Safety Report 8031628-8 (Version None)
Quarter: 2012Q1

REPORT INFORMATION
  Report Type: 
  Country: None (occurrence: None)
  Receive Date: 20120109
  Receipt Date: 20120106
  Transmission Date: 20120608
  Serious: Yes (Death, Other)
  Sender: FDA-Public Use
  Company Number: PHHY2011JP099812

PATIENT
  Age: 40 Year
  Sex: Female
  Weight: 43.45 kg

DRUGS (6)
  1. FLUOROURACIL [Suspect]
     Indication: COLON CANCER
     Dosage: 400 MG/M2, UNK
  2. DEXAMETHASONE [Concomitant]
     Dosage: 8 MG, UNK
  3. IRINOTECAN HCL [Suspect]
     Indication: COLON CANCER
     Dosage: 150 MG/M2, UNK
  4. GRANISETRON [Concomitant]
     Dosage: 3 MG, UNK
  5. FLUOROURACIL [Suspect]
     Dosage: 2400 MG/M2, EVERY 2 WEEKS
  6. LEUCOVORIN CALCIUM [Suspect]
     Indication: COLON CANCER
     Dosage: 200 MG/M2, UNK

REACTIONS (3)
  - DEATH [None]
  - DYSARTHRIA [None]
  - NEOPLASM MALIGNANT [None]
